FAERS Safety Report 8249992-3 (Version None)
Quarter: 2012Q2

REPORT INFORMATION
  Report Type: 
  Country: None (occurrence: None)
  Receive Date: 20120402
  Receipt Date: 20120322
  Transmission Date: 20120825
  Serious: Yes (Hospitalization)
  Sender: FDA-Public Use
  Company Number: SE-ASTRAZENECA-2012SE19605

PATIENT
  Age: 85 Year
  Sex: Male

DRUGS (7)
  1. RAMIPRIL [Concomitant]
  2. NITROLINGUAL [Concomitant]
     Route: 060
  3. ASPIRIN [Concomitant]
  4. ALLOPURINOL [Concomitant]
  5. METOPROLOL SUCCINATE [Suspect]
     Indication: CARDIAC FAILURE
     Route: 048
     Dates: end: 20120119
  6. SIMVASTATIN [Concomitant]
  7. FUROSEMIDE [Concomitant]

REACTIONS (2)
  - SICK SINUS SYNDROME [None]
  - ATRIOVENTRICULAR BLOCK [None]
